FAERS Safety Report 16889908 (Version 2)
Quarter: 2019Q4

REPORT INFORMATION
  Report Type: Report from Study
  Country: CA (occurrence: CA)
  Receive Date: 20191007
  Receipt Date: 20191010
  Transmission Date: 20200122
  Serious: Yes (Hospitalization)
  Sender: FDA-Public Use
  Company Number: CA-ORION CORPORATION ORION PHARMA-TREX2019-3953

PATIENT
  Age: 49 Year
  Sex: Male

DRUGS (9)
  1. COSENTYX [Suspect]
     Active Substance: SECUKINUMAB
     Route: 058
  2. OXYCONTIN [Concomitant]
     Active Substance: OXYCODONE HYDROCHLORIDE
     Route: 065
  3. SIMPONI [Concomitant]
     Active Substance: GOLIMUMAB
     Route: 065
  4. COSENTYX [Suspect]
     Active Substance: SECUKINUMAB
     Route: 058
  5. ENBREL [Concomitant]
     Active Substance: ETANERCEPT
     Route: 065
  6. COSENTYX [Suspect]
     Active Substance: SECUKINUMAB
     Indication: PSORIASIS
     Route: 058
  7. COSENTYX [Suspect]
     Active Substance: SECUKINUMAB
     Route: 058
  8. WARFARIN [Concomitant]
     Active Substance: WARFARIN
     Route: 065
  9. METHOTREXATE (TRADE NAME UNKNOWN) [Suspect]
     Active Substance: METHOTREXATE
     Indication: PRODUCT USED FOR UNKNOWN INDICATION
     Route: 065

REACTIONS (16)
  - Therapeutic product effect incomplete [Recovering/Resolving]
  - Dry skin [Recovering/Resolving]
  - Candida infection [Recovering/Resolving]
  - Pancytopenia [Recovering/Resolving]
  - Mobility decreased [Recovering/Resolving]
  - Hepatitis [Recovering/Resolving]
  - Sepsis [Recovering/Resolving]
  - Drug ineffective [Recovering/Resolving]
  - Cellulitis [Recovering/Resolving]
  - Malaise [Recovering/Resolving]
  - Fall [Recovering/Resolving]
  - Liver disorder [Recovering/Resolving]
  - Pain of skin [Recovering/Resolving]
  - Tinea pedis [Recovering/Resolving]
  - Trichophytosis [Recovering/Resolving]
  - Psoriasis [Recovering/Resolving]
